FAERS Safety Report 13487076 (Version 3)
Quarter: 2018Q1

REPORT INFORMATION
  Report Type: Report from Study
  Country: US (occurrence: US)
  Receive Date: 20170426
  Receipt Date: 20180327
  Transmission Date: 20180508
  Serious: Yes (Other)
  Sender: FDA-Public Use
  Company Number: US-UCBSA-2017015270

PATIENT
  Age: 3 Year
  Sex: Female

DRUGS (28)
  1. CERTOLIZUMAB PEGOL RA [Suspect]
     Active Substance: CERTOLIZUMAB PEGOL
     Indication: CROHN^S DISEASE
     Dosage: 400 MG, 2X/MONTH
     Route: 064
     Dates: start: 20130201, end: 20130301
  2. CERTOLIZUMAB PEGOL RA [Suspect]
     Active Substance: CERTOLIZUMAB PEGOL
     Dosage: 400 MG, MONTHLY (QM)
     Route: 064
     Dates: start: 20130315, end: 20130821
  3. CAFFEINE. [Concomitant]
     Active Substance: CAFFEINE
     Indication: MEDICAL DIET
     Dosage: UNK
     Route: 064
     Dates: start: 201211, end: 20130821
  4. LEVOTHYROXINE SODIUM. [Concomitant]
     Active Substance: LEVOTHYROXINE SODIUM
     Indication: HYPOTHYROIDISM
     Dosage: 137 ?G, ONCE DAILY (QD)
     Route: 064
     Dates: start: 20121206, end: 20130821
  5. PREDNISONE. [Concomitant]
     Active Substance: PREDNISONE
     Indication: CROHN^S DISEASE
     Dosage: 35 MG, ONCE DAILY (QD)
     Route: 064
     Dates: start: 20130503, end: 20130505
  6. PREDNISONE. [Concomitant]
     Active Substance: PREDNISONE
     Dosage: 25 MG, ONCE DAILY (QD)
     Route: 064
     Dates: start: 20130509, end: 20130511
  7. PREDNISONE. [Concomitant]
     Active Substance: PREDNISONE
     Dosage: 15 MG, ONCE DAILY (QD)
     Route: 064
     Dates: start: 20130515, end: 20130517
  8. PREDNISONE. [Concomitant]
     Active Substance: PREDNISONE
     Dosage: 5 MG, ONCE DAILY (QD)
     Route: 064
     Dates: start: 20130521, end: 20130523
  9. TYLENOL [Concomitant]
     Active Substance: ACETAMINOPHEN
     Indication: ABDOMINAL PAIN
     Dosage: 750 MG, ONCE DAILY (QD); 500-1000MG QD
     Route: 064
     Dates: start: 20130820, end: 20130820
  10. CLOBETASOL PROPIONATE. [Concomitant]
     Active Substance: CLOBETASOL PROPIONATE
     Indication: ACNE
     Dosage: UNK, ONCE DAILY (QD) (ROUTE: TOPICAL-FACE, SCALP AND/OR SKIN)
     Route: 064
     Dates: start: 20121122, end: 20130821
  11. PREDNISONE. [Concomitant]
     Active Substance: PREDNISONE
     Indication: CROHN^S DISEASE
     Dosage: 40 MG, ONCE DAILY (QD)
     Route: 064
     Dates: start: 20130419, end: 20130502
  12. PROTONIX [Concomitant]
     Active Substance: PANTOPRAZOLE SODIUM
     Dosage: UNK, ONCE DAILY (QD)
     Route: 064
     Dates: start: 20130821, end: 20130821
  13. PREDNISONE. [Concomitant]
     Active Substance: PREDNISONE
     Dosage: 20 MG, ONCE DAILY (QD)
     Route: 064
     Dates: start: 20130512, end: 20130514
  14. PREDNISONE. [Concomitant]
     Active Substance: PREDNISONE
     Dosage: 40 MG, ONCE DAILY (QD) (40 MG/DAY FOR 18 DAYS TAPER BY 5 MG ONCE A WEEK, STAY AT 20 MG/DAY FOR REMA)
     Route: 064
     Dates: start: 20130608, end: 20130625
  15. TYLENOL [Concomitant]
     Active Substance: ACETAMINOPHEN
     Indication: HEADACHE
     Dosage: 500 MG 6 TOTAL
     Route: 064
     Dates: start: 20121206, end: 20130521
  16. PREDNISONE. [Concomitant]
     Active Substance: PREDNISONE
     Dosage: 10 MG, ONCE DAILY (QD)
     Route: 064
     Dates: start: 20130518, end: 20130520
  17. PREDNISONE. [Concomitant]
     Active Substance: PREDNISONE
     Dosage: 35 MG, ONCE DAILY (QD)
     Route: 064
     Dates: start: 20130626, end: 20130702
  18. CERVIDIL [Concomitant]
     Active Substance: DINOPROSTONE
     Indication: LABOUR INDUCTION
     Dosage: UNK
     Route: 064
     Dates: start: 20130820, end: 20130820
  19. HYDROMORPHONE HYDROCHLORIDE. [Concomitant]
     Active Substance: HYDROMORPHONE HYDROCHLORIDE
     Indication: ABDOMINAL PAIN
     Dosage: THRU IV EVERY 6-8 HRS
     Route: 064
     Dates: start: 20130820, end: 20130821
  20. IRON [Concomitant]
     Active Substance: IRON
     Indication: IRON DEFICIENCY
     Dosage: 600 MG, ONCE DAILY (QD)
     Route: 064
     Dates: start: 20130601, end: 20130821
  21. LIDOCAINE. [Concomitant]
     Active Substance: LIDOCAINE
     Indication: HAEMORRHOIDS
     Dosage: 1 DF, TOTAL
     Route: 064
     Dates: start: 20130806, end: 20130806
  22. PREDNISONE. [Concomitant]
     Active Substance: PREDNISONE
     Dosage: 30 MG, ONCE DAILY (QD)
     Route: 064
     Dates: start: 20130703, end: 20130709
  23. DIPHTHERIA TETANUS ACELLULAR PERTUSSIS [Concomitant]
     Indication: IMMUNISATION
     Dosage: UNK
     Dates: start: 20130626, end: 20130626
  24. PREDNISONE. [Concomitant]
     Active Substance: PREDNISONE
     Dosage: 30 MG, ONCE DAILY (QD)
     Route: 064
     Dates: start: 20130506, end: 20130508
  25. PREDNISONE. [Concomitant]
     Active Substance: PREDNISONE
     Dosage: 25 MG, ONCE DAILY (QD)
     Route: 064
     Dates: start: 20130710, end: 20130716
  26. PREDNISONE. [Concomitant]
     Active Substance: PREDNISONE
     Dosage: 20 MG, ONCE DAILY (QD)
     Route: 064
     Dates: start: 20130717, end: 20130821
  27. TERBUTALINE [Concomitant]
     Active Substance: TERBUTALINE
     Indication: PREMATURE LABOUR
     Dosage: 1 DF, ONCE DAILY (QD)
     Route: 064
     Dates: start: 20130611, end: 20130611
  28. PROTONIX [Concomitant]
     Active Substance: PANTOPRAZOLE SODIUM
     Indication: ABDOMINAL PAIN
     Dosage: UNK, 2X/DAY (BID)
     Route: 064
     Dates: start: 20130820, end: 20130820

REACTIONS (3)
  - Cellulitis streptococcal [Recovered/Resolved]
  - Foetal exposure during pregnancy [Unknown]
  - Anorectal cellulitis [Recovered/Resolved]

NARRATIVE: CASE EVENT DATE: 20130201
